FAERS Safety Report 8636954 (Version 2)
Quarter: 2012Q4

REPORT INFORMATION
  Report Type: 
  Country: US (occurrence: US)
  Receive Date: 20120626
  Receipt Date: 20120912
  Transmission Date: 20130627
  Serious: No
  Sender: FDA-Public Use
  Company Number: US-TEVA-338561USA

PATIENT
  Age: 70 Year
  Sex: Male

DRUGS (3)
  1. QNASL [Suspect]
     Indication: RHINITIS ALLERGIC
     Dosage: 160 Microgram Daily;
     Route: 045
     Dates: start: 20120512
  2. ATORVASTATIN [Concomitant]
     Indication: HYPERCHOLESTEROLAEMIA
     Dosage: 20 Milligram Daily;
     Route: 048
  3. LATANOPROST [Concomitant]
     Indication: GLAUCOMA
     Route: 031

REACTIONS (1)
  - Burning sensation [Not Recovered/Not Resolved]
